FAERS Safety Report 14597572 (Version 3)
Quarter: 2018Q2

REPORT INFORMATION
  Report Type: Report from Study
  Country: None (occurrence: US)
  Receive Date: 20180305
  Receipt Date: 20180523
  Transmission Date: 20180711
  Serious: Yes (Hospitalization)
  Sender: FDA-Public Use
  Company Number: US-ABBVIE-17K-163-2063143-00

PATIENT
  Sex: Female

DRUGS (3)
  1. HUMIRA [Suspect]
     Active Substance: ADALIMUMAB
     Dosage: DOSAGE INCREASED
     Route: 058
  2. HUMIRA [Suspect]
     Active Substance: ADALIMUMAB
     Route: 058
  3. HUMIRA [Suspect]
     Active Substance: ADALIMUMAB
     Indication: COLITIS ULCERATIVE
     Route: 058

REACTIONS (12)
  - Stress [Unknown]
  - Fibromyalgia [Unknown]
  - Back pain [Unknown]
  - Flatulence [Unknown]
  - Drug ineffective [Unknown]
  - Abdominal discomfort [Unknown]
  - Colitis ulcerative [Unknown]
  - Neck pain [Unknown]
  - Defaecation urgency [Unknown]
  - Neuropathy peripheral [Unknown]
  - Intestinal polyp [Unknown]
  - Frequent bowel movements [Unknown]
